FAERS Safety Report 20460785 (Version 1)
Quarter: 2022Q1

REPORT INFORMATION
  Report Type: Report from Study
  Country: CA (occurrence: CA)
  Receive Date: 20220211
  Receipt Date: 20220211
  Transmission Date: 20220423
  Serious: Yes (Death)
  Sender: FDA-Public Use
  Company Number: CA-PFIZER INC-202200227726

PATIENT
  Age: 33 Year
  Sex: Female

DRUGS (4)
  1. HYDROMORPHONE HYDROCHLORIDE [Suspect]
     Active Substance: HYDROMORPHONE HYDROCHLORIDE
     Dosage: UNK
  2. MORPHINE SULFATE [Suspect]
     Active Substance: MORPHINE SULFATE
     Dosage: UNK
  3. CARFENTANIL [Suspect]
     Active Substance: CARFENTANIL
     Dosage: UNK
  4. FENTANYL [Suspect]
     Active Substance: FENTANYL
     Dosage: UNK

REACTIONS (1)
  - Toxicity to various agents [Fatal]
